FAERS Safety Report 22057902 (Version 2)
Quarter: 2023Q1

REPORT INFORMATION
  Report Type: Report from Study
  Country: CO (occurrence: CO)
  Receive Date: 20230303
  Receipt Date: 20230308
  Transmission Date: 20230418
  Serious: Yes (Other)
  Sender: FDA-Public Use
  Company Number: CO-UCBSA-2023010560

PATIENT
  Age: 48 Year
  Sex: Male

DRUGS (1)
  1. CERTOLIZUMAB PEGOL [Suspect]
     Active Substance: CERTOLIZUMAB PEGOL
     Indication: Ankylosing spondylitis
     Dosage: 400 MILLIGRAM,INITIAL
     Route: 058
     Dates: start: 20230127

REACTIONS (2)
  - Syphilis [Recovering/Resolving]
  - Treponema test positive [Recovered/Resolved]

NARRATIVE: CASE EVENT DATE: 20230220
